FAERS Safety Report 7702825-3 (Version None)
Quarter: 2011Q3

REPORT INFORMATION
  Report Type: 
  Country: None (occurrence: None)
  Receive Date: 20110823
  Receipt Date: 20110812
  Transmission Date: 20111222
  Serious: No
  Sender: FDA-Public Use
  Company Number: US-JNJFOC-20110807391

PATIENT
  Sex: Female
  Weight: 74.84 kg

DRUGS (3)
  1. CELEXA [Concomitant]
     Indication: BIPOLAR DISORDER
     Route: 048
     Dates: start: 20090101
  2. DURAGESIC-100 [Suspect]
     Indication: PAIN
     Route: 062
     Dates: start: 20100101
  3. LITHIUM CARBONATE [Concomitant]
     Indication: BIPOLAR DISORDER
     Route: 048
     Dates: start: 19970101

REACTIONS (2)
  - DRUG DOSE OMISSION [None]
  - PRODUCT QUALITY ISSUE [None]
